FAERS Safety Report 9498768 (Version 1)
Quarter: 2013Q3

REPORT INFORMATION
  Report Type: Spontaneous
  Country: US (occurrence: US)
  Receive Date: 20130904
  Receipt Date: 20130904
  Transmission Date: 20140515
  Serious: Yes (Other)
  Sender: FDA-Public Use
  Company Number: PHHY2013US096022

PATIENT
  Age: 73 Year
  Sex: Female

DRUGS (2)
  1. QUINIDINE [Suspect]
  2. PROCAINAMIDE [Suspect]

REACTIONS (2)
  - Torsade de pointes [Unknown]
  - Long QT syndrome [Unknown]
